FAERS Safety Report 7620605-4 (Version None)
Quarter: 2011Q3

REPORT INFORMATION
  Report Type: 
  Country: None (occurrence: None)
  Receive Date: 20110719
  Receipt Date: 20110713
  Transmission Date: 20111222
  Serious: Yes (Other)
  Sender: FDA-Public Use
  Company Number: CH-ROCHE-789876

PATIENT
  Age: 28 Year
  Sex: Male

DRUGS (1)
  1. CLONAZEPAM [Suspect]
     Route: 058
     Dates: start: 20110501

REACTIONS (3)
  - INJECTION SITE ERYTHEMA [None]
  - INJECTION SITE ULCER [None]
  - INJECTION SITE INDURATION [None]
